FAERS Safety Report 10238757 (Version 2)
Quarter: 2014Q2

REPORT INFORMATION
  Report Type: Spontaneous
  Country: FR (occurrence: FR)
  Receive Date: 20140616
  Receipt Date: 20140616
  Transmission Date: 20141212
  Serious: Yes (Hospitalization, Other)
  Sender: FDA-Public Use
  Company Number: FR-DSJP-DSM-2013-00937

PATIENT
  Sex: 0

DRUGS (3)
  1. COOLMETEC [Suspect]
     Indication: HYPERTENSION
     Dosage: 20/12.5 MG
     Route: 048
     Dates: start: 201301, end: 201302
  2. COOLMETEC [Suspect]
     Dosage: 20/25 MG
     Route: 048
     Dates: start: 201302, end: 20130803
  3. COOLMETEC [Suspect]
     Dosage: 40/12.5 MG
     Route: 048
     Dates: end: 201404

REACTIONS (9)
  - Constipation [Recovered/Resolved]
  - Gastrointestinal pain [Recovered/Resolved]
  - Blood creatine phosphokinase increased [Not Recovered/Not Resolved]
  - Dehydration [Recovered/Resolved]
  - Polyuria [Recovered/Resolved]
  - Weight decreased [Not Recovered/Not Resolved]
  - Renal disorder [Recovered/Resolved]
  - Abdominal pain upper [Recovered/Resolved]
  - Gamma-glutamyltransferase increased [Not Recovered/Not Resolved]
